FAERS Safety Report 21722691 (Version 1)
Quarter: 2022Q4

REPORT INFORMATION
  Report Type: Spontaneous
  Country: TH (occurrence: TH)
  Receive Date: 20221213
  Receipt Date: 20221213
  Transmission Date: 20230113
  Serious: Yes (Death, Hospitalization)
  Sender: FDA-Public Use
  Company Number: TH-HBT LABS-2022HBT00005

PATIENT
  Age: 68 Year
  Sex: Female

DRUGS (3)
  1. PACLITAXEL [Suspect]
     Active Substance: PACLITAXEL
     Indication: Ureteric cancer
     Dosage: 175 MG/M2, EVERY 3 WEEKS
  2. LOSARTAN [Concomitant]
     Active Substance: LOSARTAN
     Dosage: 50 MG
  3. SIMVASTATIN [Concomitant]
     Active Substance: SIMVASTATIN
     Dosage: 20 MG

REACTIONS (3)
  - Systemic scleroderma [Fatal]
  - Scleroderma renal crisis [Fatal]
  - Interstitial lung disease [Unknown]
